FAERS Safety Report 4476647-3 (Version None)
Quarter: 2004Q4

REPORT INFORMATION
  Report Type: 
  Country: None (occurrence: None)
  Receive Date: 20041015
  Receipt Date: 20041015
  Transmission Date: 20050328
  Serious: Yes (Death)
  Sender: FDA-Public Use
  Company Number: None

PATIENT
  Age: 44 Year
  Sex: Female
  Weight: 48.0813 kg

DRUGS (1)
  1. RUBETICAN SUPERGEN [Suspect]
     Indication: PANCREATIC CARCINOMA METASTATIC
     Dosage: 1.5 MG/M2 DAY ORAL
     Route: 048
     Dates: start: 20040910, end: 20040914

REACTIONS (8)
  - ANOREXIA [None]
  - DEHYDRATION [None]
  - DIARRHOEA [None]
  - MALIGNANT NEOPLASM PROGRESSION [None]
  - NAUSEA [None]
  - NEUTROPENIA [None]
  - THROMBOCYTOPENIA [None]
  - VOMITING [None]
